FAERS Safety Report 10227556 (Version 2)
Quarter: 2014Q3

REPORT INFORMATION
  Report Type: Report from Study
  Country: CA (occurrence: CA)
  Receive Date: 20140610
  Receipt Date: 20140828
  Transmission Date: 20150326
  Serious: Yes (Life-Threatening)
  Sender: FDA-Public Use
  Company Number: PHHY2014CA070857

PATIENT
  Age: 39 Year
  Sex: Male

DRUGS (5)
  1. ATROPINE [Concomitant]
     Active Substance: ATROPINE
     Dosage: 1 DRP, BID
  2. CLOZARIL [Suspect]
     Active Substance: CLOZAPINE
     Indication: OBSESSIVE-COMPULSIVE DISORDER
  3. SEROQUEL [Concomitant]
     Active Substance: QUETIAPINE FUMARATE
     Dosage: 2 DF, QHS
     Route: 048
  4. CLOZARIL [Suspect]
     Active Substance: CLOZAPINE
     Indication: SCHIZOPHRENIA
     Dosage: 175 MG, QHS
     Route: 048
     Dates: start: 20130905, end: 20140328
  5. COLACE [Concomitant]
     Active Substance: DOCUSATE SODIUM
     Dosage: UKN

REACTIONS (2)
  - Arteriosclerosis coronary artery [Recovered/Resolved]
  - Cardiac disorder [Recovered/Resolved]

NARRATIVE: CASE EVENT DATE: 20140317
